FAERS Safety Report 19170304 (Version 1)
Quarter: 2021Q2

REPORT INFORMATION
  Report Type: Spontaneous
  Country: EG (occurrence: EG)
  Receive Date: 20210422
  Receipt Date: 20210422
  Transmission Date: 20210717
  Serious: Yes (Life-Threatening)
  Sender: FDA-Public Use
  Company Number: EG-ELI_LILLY_AND_COMPANY-EG202104008720

PATIENT
  Age: 61 Year
  Sex: Female
  Weight: 82 kg

DRUGS (9)
  1. GEMZAR [Suspect]
     Active Substance: GEMCITABINE HYDROCHLORIDE
     Indication: UTERINE CANCER
  2. GEMCITABINE. [Suspect]
     Active Substance: GEMCITABINE
     Indication: OVARIAN CANCER
  3. GEMZAR [Suspect]
     Active Substance: GEMCITABINE HYDROCHLORIDE
     Indication: MALIGNANT PERITONEAL NEOPLASM
     Dosage: 1400 MG, CYCLICAL (EVERY 21 DAYS)
     Route: 042
     Dates: start: 202012
  4. CYTOPLATIN [Concomitant]
     Active Substance: CISPLATIN
     Indication: UTERINE CANCER
  5. GEMZAR [Suspect]
     Active Substance: GEMCITABINE HYDROCHLORIDE
     Indication: OVARIAN CANCER
  6. CYTOPLATIN [Concomitant]
     Active Substance: CISPLATIN
     Indication: MALIGNANT PERITONEAL NEOPLASM
     Dosage: 100 MG, CYCLICAL (EVERY 21 DAYS)
     Route: 042
     Dates: start: 202012
  7. CYTOPLATIN [Concomitant]
     Active Substance: CISPLATIN
     Indication: OVARIAN CANCER
  8. GEMCITABINE. [Suspect]
     Active Substance: GEMCITABINE
     Indication: MALIGNANT PERITONEAL NEOPLASM
     Dosage: 1400 MG, CYCLICAL (EVERY 21 DAYS)
     Route: 042
     Dates: start: 202012
  9. GEMCITABINE. [Suspect]
     Active Substance: GEMCITABINE
     Indication: UTERINE CANCER

REACTIONS (6)
  - Pain in extremity [Unknown]
  - Off label use [Unknown]
  - Abdominal pain [Unknown]
  - Vomiting [Unknown]
  - Dyspnoea [Recovered/Resolved]
  - Dyspepsia [Unknown]
